FAERS Safety Report 16805588 (Version 1)
Quarter: 2019Q3

REPORT INFORMATION
  Report Type: Spontaneous
  Country: JP (occurrence: JP)
  Receive Date: 20190913
  Receipt Date: 20190913
  Transmission Date: 20191005
  Serious: Yes (Other)
  Sender: FDA-Public Use
  Company Number: JP-PFIZER INC-2019389825

PATIENT

DRUGS (2)
  1. UNASYN-S 3G [Suspect]
     Active Substance: AMPICILLIN SODIUM\SULBACTAM SODIUM
     Indication: MENINGITIS BACTERIAL
     Dosage: 3 G, 6X/DAY
  2. ZYVOX [Suspect]
     Active Substance: LINEZOLID
     Dosage: UNK

REACTIONS (4)
  - Product use issue [Unknown]
  - Paralysis [Unknown]
  - Off label use [Unknown]
  - Visual impairment [Unknown]
